FAERS Safety Report 19408522 (Version 4)
Quarter: 2021Q3

REPORT INFORMATION
  Report Type: Spontaneous
  Country: US (occurrence: US)
  Receive Date: 20210612
  Receipt Date: 20210723
  Transmission Date: 20211014
  Serious: Yes (Hospitalization)
  Sender: FDA-Public Use
  Company Number: US-JNJFOC-20210616526

PATIENT
  Age: 63 Year
  Sex: Male
  Weight: 88.53 kg

DRUGS (1)
  1. TREMFYA [Suspect]
     Active Substance: GUSELKUMAB
     Indication: PSORIASIS
     Route: 065
     Dates: start: 202103

REACTIONS (3)
  - Product dose omission issue [Unknown]
  - Myocardial infarction [Unknown]
  - Needle issue [Unknown]

NARRATIVE: CASE EVENT DATE: 202104
